FAERS Safety Report 4597771-0 (Version None)
Quarter: 2005Q1

REPORT INFORMATION
  Report Type: 
  Country: None (occurrence: None)
  Receive Date: 20050125
  Receipt Date: 20040830
  Transmission Date: 20050727
  Serious: No
  Sender: FDA-Public Use
  Company Number: USA040876980

PATIENT
  Age: 94 Year
  Sex: Female

DRUGS (1)
  1. FORTEO [Suspect]
     Indication: OSTEOPOROSIS
     Dates: start: 20040828

REACTIONS (6)
  - ASTHENIA [None]
  - CRYING [None]
  - DIFFICULTY IN WALKING [None]
  - MUSCLE SPASMS [None]
  - PAIN IN EXTREMITY [None]
  - VULVOVAGINAL DISCOMFORT [None]
